FAERS Safety Report 12598348 (Version 1)
Quarter: 2016Q3

REPORT INFORMATION
  Report Type: Spontaneous
  Country: AR (occurrence: AR)
  Receive Date: 20160726
  Receipt Date: 20160726
  Transmission Date: 20161109
  Serious: Yes (Death, Hospitalization, Other)
  Sender: FDA-Public Use
  Company Number: AR-SEATTLE GENETICS-2016SGN00356

PATIENT

DRUGS (1)
  1. ADCETRIS [Suspect]
     Active Substance: BRENTUXIMAB VEDOTIN
     Indication: ANAPLASTIC LARGE CELL LYMPHOMA T- AND NULL-CELL TYPES
     Dosage: 1.8 MG/KG, UNK
     Route: 042
     Dates: start: 20160122, end: 20160222

REACTIONS (16)
  - Pneumonitis [Recovering/Resolving]
  - Mucosal dryness [Recovering/Resolving]
  - Vomiting [Recovered/Resolved]
  - Pyrexia [Recovered/Resolved]
  - Dyspnoea [Recovering/Resolving]
  - Fatigue [Recovering/Resolving]
  - Pulmonary toxicity [Recovering/Resolving]
  - Night sweats [Recovered/Resolved]
  - Nausea [Recovered/Resolved]
  - Fatigue [Recovered/Resolved]
  - Mucormycosis [Fatal]
  - Sinusitis aspergillus [Unknown]
  - Dry mouth [Recovered/Resolved]
  - Constipation [Recovered/Resolved]
  - Skin irritation [Recovering/Resolving]
  - Insomnia [Recovering/Resolving]

NARRATIVE: CASE EVENT DATE: 20160122
